FAERS Safety Report 23012788 (Version 2)
Quarter: 2024Q1

REPORT INFORMATION
  Report Type: Spontaneous
  Country: FR (occurrence: FR)
  Receive Date: 20230930
  Receipt Date: 20240222
  Transmission Date: 20240410
  Serious: Yes (Other)
  Sender: FDA-Public Use
  Company Number: None

PATIENT
  Age: 20 Year
  Sex: Male
  Weight: 92 kg

DRUGS (12)
  1. CISATRACURIUM BESYLATE [Suspect]
     Active Substance: CISATRACURIUM BESYLATE
     Indication: General anaesthesia
     Dates: start: 20230628, end: 20230628
  2. ACETAMINOPHEN [Suspect]
     Active Substance: ACETAMINOPHEN
     Indication: Pain prophylaxis
     Dates: start: 20230628, end: 20230629
  3. TRANEXAMIC ACID [Suspect]
     Active Substance: TRANEXAMIC ACID
     Indication: Haemorrhage prophylaxis
     Dates: start: 20230628, end: 20230628
  4. DEXAMETHASONE [Suspect]
     Active Substance: DEXAMETHASONE
     Indication: General anaesthesia
     Dates: start: 20230628, end: 20230628
  5. KETOPROFEN [Suspect]
     Active Substance: KETOPROFEN
     Indication: Pain prophylaxis
     Dates: start: 20230628, end: 20230628
  6. THIOPENTAL SODIUM [Suspect]
     Active Substance: THIOPENTAL SODIUM
     Indication: General anaesthesia
     Dates: start: 20230628, end: 20230628
  7. NEFOPAM HYDROCHLORIDE [Suspect]
     Active Substance: NEFOPAM HYDROCHLORIDE
     Indication: Pain prophylaxis
     Dates: start: 20230628, end: 20230628
  8. SUFENTANIL [Suspect]
     Active Substance: SUFENTANIL
     Indication: General anaesthesia
     Dates: start: 20230628, end: 20230628
  9. ROPIVACAINE HYDROCHLORIDE [Suspect]
     Active Substance: ROPIVACAINE HYDROCHLORIDE
     Indication: Infiltration anaesthesia
     Dates: start: 20230628, end: 20230628
  10. CLINDAMYCIN [Suspect]
     Active Substance: CLINDAMYCIN
     Indication: Antibiotic prophylaxis
     Dates: start: 20230628, end: 20230628
  11. DICLOFENAC [Concomitant]
     Active Substance: DICLOFENAC
  12. SIMPONI [Concomitant]
     Active Substance: GOLIMUMAB

REACTIONS (1)
  - Urticaria [Recovered/Resolved]

NARRATIVE: CASE EVENT DATE: 20230628
